FAERS Safety Report 7204946-0 (Version None)
Quarter: 2010Q4

REPORT INFORMATION
  Report Type: 
  Country: None (occurrence: None)
  Receive Date: 20101230
  Receipt Date: 20101217
  Transmission Date: 20110411
  Serious: Yes (Hospitalization)
  Sender: FDA-Public Use
  Company Number: GB-GENENTECH-311634

PATIENT
  Sex: Male
  Weight: 68.5 kg

DRUGS (20)
  1. RITUXIMAB [Suspect]
     Indication: B-CELL LYMPHOMA
     Dosage: 700 MG, X1
     Route: 042
     Dates: start: 20101201
  2. FLUDARABINE PHOSPHATE [Suspect]
     Indication: B-CELL LYMPHOMA
     Dosage: 70 MG, QAM
     Route: 048
     Dates: start: 20101201
  3. CYCLOPHOSPHAMIDE [Suspect]
     Indication: B-CELL LYMPHOMA
     Dosage: 400 MG, QAM
     Route: 048
     Dates: start: 20101201
  4. ACETAMINOPHEN [Concomitant]
     Indication: PAIN
     Dosage: UNK
     Route: 048
  5. PREGABALIN [Concomitant]
     Indication: NEURALGIA
     Dosage: 150 MG, QAM
     Route: 048
  6. AMITRIPTYLINE [Concomitant]
     Indication: NEURALGIA
     Dosage: 90 MG, QAM
     Route: 048
  7. FELODIPINE [Concomitant]
     Indication: ANGINA PECTORIS
     Dosage: 10 MG, QAM
     Route: 048
  8. ASPIRIN [Concomitant]
     Indication: PRODUCT USED FOR UNKNOWN INDICATION
     Dosage: 75 MG, QAM
     Route: 048
  9. ATENOLOL [Concomitant]
     Indication: BLOOD PRESSURE
     Dosage: 50 MG, QAM
     Route: 048
  10. SIMVASTATIN [Concomitant]
     Indication: BLOOD CHOLESTEROL
     Dosage: 40 MG, QAM
     Route: 048
  11. FENOFIBRATE [Concomitant]
     Indication: BLOOD CHOLESTEROL
     Dosage: 200 MG, QAM
     Route: 048
  12. ALLOPURINOL [Concomitant]
     Indication: PRODUCT USED FOR UNKNOWN INDICATION
     Dosage: 300 MG, QAM
     Route: 048
     Dates: start: 20101130
  13. COTRIM [Concomitant]
     Indication: PRODUCT USED FOR UNKNOWN INDICATION
     Dosage: FREQUENCY: 3XPER WEEK
     Route: 048
     Dates: start: 20101201
  14. ONDANSETRON [Concomitant]
     Indication: PRODUCT USED FOR UNKNOWN INDICATION
     Dosage: 8 MG, QAM
     Route: 048
     Dates: start: 20101201
  15. CHLORPHENIRAMINE [Concomitant]
     Indication: PRODUCT USED FOR UNKNOWN INDICATION
     Dosage: ONCE, PROTOCOL TREATMENT
     Route: 048
     Dates: start: 20101201
  16. ACYCLOVIR [Concomitant]
     Indication: PRODUCT USED FOR UNKNOWN INDICATION
     Dosage: 400 MG, BID
     Route: 048
     Dates: start: 20101201
  17. BENDROFLUMETHIAZIDE [Concomitant]
     Indication: FLUID RETENTION
     Dosage: OTHER INDICATION: BP
     Route: 048
  18. ESOMEPRAZOLE [Concomitant]
     Indication: GASTRIC DISORDER
     Dosage: 40 MG, QAM
     Route: 048
  19. FLUCONAZOLE [Concomitant]
     Indication: PRODUCT USED FOR UNKNOWN INDICATION
     Dosage: 50 MG, QAM
     Route: 048
     Dates: start: 20101201
  20. CHLORHEXIDINE [Concomitant]
     Indication: PRODUCT USED FOR UNKNOWN INDICATION
     Dosage: QDS,
     Route: 048
     Dates: start: 20101201

REACTIONS (1)
  - PERICARDITIS [None]
